FAERS Safety Report 11784522 (Version 1)
Quarter: 2015Q4

REPORT INFORMATION
  Report Type: Spontaneous
  Country: US (occurrence: US)
  Receive Date: 20151130
  Receipt Date: 20151130
  Transmission Date: 20160305
  Serious: No
  Sender: FDA-Public Use
  Company Number: US-ALKEM-001101

PATIENT
  Sex: Female

DRUGS (1)
  1. METFORMIN ALKEM [Suspect]
     Active Substance: METFORMIN HYDROCHLORIDE
     Indication: PRODUCT USED FOR UNKNOWN INDICATION
     Dosage: STRENGTH: 500

REACTIONS (2)
  - Joint swelling [Unknown]
  - Muscle spasms [Unknown]
